FAERS Safety Report 6105579-X (Version None)
Quarter: 2009Q1

REPORT INFORMATION
  Report Type: 
  Country: None (occurrence: None)
  Receive Date: 20090304
  Receipt Date: 20090304
  Transmission Date: 20090719
  Serious: No
  Sender: FDA-Public Use
  Company Number: None

PATIENT
  Age: 89 Year
  Sex: Male

DRUGS (1)
  1. LEVAQUIN [Suspect]
     Dosage: 500 MG ONCE IV CONTINUOUS
     Route: 042
     Dates: start: 20090226, end: 20090228

REACTIONS (3)
  - INFUSION SITE ERYTHEMA [None]
  - INFUSION SITE PRURITUS [None]
  - NO REACTION ON PREVIOUS EXPOSURE TO DRUG [None]
